FAERS Safety Report 17900085 (Version 4)
Quarter: 2020Q4

REPORT INFORMATION
  Report Type: Report from Study
  Country: US (occurrence: US)
  Receive Date: 20200616
  Receipt Date: 20201109
  Transmission Date: 20210113
  Serious: No
  Sender: FDA-Public Use
  Company Number: NVSC2020US167825

PATIENT
  Age: 83 Year
  Sex: Male

DRUGS (1)
  1. COSENTYX [Suspect]
     Active Substance: SECUKINUMAB
     Indication: PSORIASIS
     Dosage: UNK, BENEATH THE SKIN USUALLY VIA INJECTION
     Route: 058

REACTIONS (4)
  - Product storage error [Unknown]
  - Product packaging issue [Unknown]
  - Drug ineffective [Unknown]
  - Poor quality product administered [Unknown]
